FAERS Safety Report 20757905 (Version 1)
Quarter: 2022Q2

REPORT INFORMATION
  Report Type: Spontaneous
  Country: PL (occurrence: PL)
  Receive Date: 20220427
  Receipt Date: 20220427
  Transmission Date: 20220721
  Serious: Yes (Hospitalization, Other)
  Sender: FDA-Public Use
  Company Number: PL-GILEAD-2022-0579384

PATIENT
  Age: 42 Year
  Sex: Male

DRUGS (1)
  1. ODEFSEY [Suspect]
     Active Substance: EMTRICITABINE\RILPIVIRINE HYDROCHLORIDE\TENOFOVIR ALAFENAMIDE FUMARATE
     Indication: HIV infection
     Route: 065

REACTIONS (3)
  - Peritonitis [Recovered/Resolved with Sequelae]
  - Intestinal operation [Unknown]
  - Chronic hepatitis C [Unknown]

NARRATIVE: CASE EVENT DATE: 20060101
